FAERS Safety Report 19362965 (Version 1)
Quarter: 2021Q2

REPORT INFORMATION
  Report Type: Spontaneous
  Country: US (occurrence: US)
  Receive Date: 20210602
  Receipt Date: 20210602
  Transmission Date: 20210717
  Serious: No
  Sender: FDA-Public Use
  Company Number: US-BAYER-2021-149833

PATIENT
  Age: 58 Year
  Sex: Female

DRUGS (1)
  1. CLIMARA [Suspect]
     Active Substance: ESTRADIOL
     Dosage: UNK UNK, OW
     Route: 062
     Dates: start: 20210501

REACTIONS (2)
  - Device adhesion issue [None]
  - Incorrect product administration duration [None]

NARRATIVE: CASE EVENT DATE: 202105
